FAERS Safety Report 16172933 (Version 1)
Quarter: 2019Q2

REPORT INFORMATION
  Report Type: Spontaneous
  Country: US (occurrence: US)
  Receive Date: 20190409
  Receipt Date: 20190409
  Transmission Date: 20190711
  Serious: No
  Sender: FDA-Public Use
  Company Number: US-BIOGEN-2019BI00687789

PATIENT
  Age: 48 Year
  Sex: Female

DRUGS (1)
  1. TYSABRI [Suspect]
     Active Substance: NATALIZUMAB
     Indication: MULTIPLE SCLEROSIS
     Route: 050
     Dates: start: 20171206

REACTIONS (12)
  - Constipation [Unknown]
  - Asthenia [Unknown]
  - Fatigue [Unknown]
  - Diarrhoea [Unknown]
  - Urinary tract infection [Unknown]
  - Malaise [Unknown]
  - Drug ineffective [Unknown]
  - Migraine [Unknown]
  - Anxiety [Unknown]
  - Memory impairment [Unknown]
  - Nausea [Unknown]
  - Spinal disorder [Unknown]

NARRATIVE: CASE EVENT DATE: 201709
